FAERS Safety Report 16360583 (Version 2)
Quarter: 2019Q2

REPORT INFORMATION
  Report Type: Report from Study
  Country: US (occurrence: US)
  Receive Date: 20190528
  Receipt Date: 20190531
  Transmission Date: 20190711
  Serious: No
  Sender: FDA-Public Use
  Company Number: US-IPSEN BIOPHARMACEUTICALS, INC.-2019-08309

PATIENT
  Age: 5 Year
  Sex: Male
  Weight: 19.1 kg

DRUGS (2)
  1. DYSPORT [Suspect]
     Active Substance: ABOBOTULINUMTOXINA
     Indication: MUSCLE SPASTICITY
     Dosage: 400 UNITS
     Route: 030
     Dates: start: 20180406
  2. BACLOFEN. [Concomitant]
     Active Substance: BACLOFEN
     Indication: MUSCLE SPASTICITY
     Dates: start: 20150102

REACTIONS (2)
  - Otitis externa [Unknown]
  - Otitis media acute [Unknown]

NARRATIVE: CASE EVENT DATE: 20190518
